FAERS Safety Report 15725566 (Version 2)
Quarter: 2019Q1

REPORT INFORMATION
  Report Type: Spontaneous
  Country: AT (occurrence: AT)
  Receive Date: 20181215
  Receipt Date: 20190330
  Transmission Date: 20190417
  Serious: Yes (Death, Other)
  Sender: FDA-Public Use
  Company Number: AT-ACCORD-096596

PATIENT
  Age: 68 Year
  Sex: Male

DRUGS (2)
  1. VARGATEF [Suspect]
     Active Substance: NINTEDANIB
     Indication: NON-SMALL CELL LUNG CANCER
     Dosage: 2 X 200 MG PER DAY AND AND PAUSED ON THE DAY OF?DOCETAXEL ADMINISTRATION
     Dates: start: 201712
  2. DOCETAXEL. [Suspect]
     Active Substance: DOCETAXEL
     Indication: NON-SMALL CELL LUNG CANCER
     Dosage: 60 MG/M2 EVERY THREE WEEKS
     Dates: start: 201706

REACTIONS (3)
  - Fatigue [Unknown]
  - Polyneuropathy [Unknown]
  - Alopecia [Unknown]

NARRATIVE: CASE EVENT DATE: 2017
